FAERS Safety Report 10252158 (Version 7)
Quarter: 2018Q4

REPORT INFORMATION
  Report Type: Spontaneous
  Country: FR (occurrence: FR)
  Receive Date: 20140623
  Receipt Date: 20181030
  Transmission Date: 20190204
  Serious: Yes (Other)
  Sender: FDA-Public Use
  Company Number: FR-RANBAXY-2014RR-82538

PATIENT
  Age: 17 Year
  Sex: Female

DRUGS (6)
  1. IBUPROFEN. [Suspect]
     Active Substance: IBUPROFEN
     Indication: CHONDROPATHY
     Dosage: 400 MG, 8 TIMES/DAY
     Route: 065
     Dates: start: 201304
  2. MIRTAZAPINE. [Concomitant]
     Active Substance: MIRTAZAPINE
     Indication: MAJOR DEPRESSION
     Dosage: 15 MG/DAY
     Route: 065
  3. IBUPROFEN. [Suspect]
     Active Substance: IBUPROFEN
     Indication: ARTHRALGIA
  4. IBUPROFEN. [Suspect]
     Active Substance: IBUPROFEN
     Dosage: 400 MG, PRN, 4 - 5 TIMES A DAY
     Route: 065
  5. IBUPROFEN. [Suspect]
     Active Substance: IBUPROFEN
     Indication: ARTHRALGIA
     Dosage: GRADUALLY STARTED REDUCING THE DOSES, UNTIL SHE STOPPED TAKING IT COMPLETLY
     Route: 065
  6. IBUPROFEN. [Suspect]
     Active Substance: IBUPROFEN
     Indication: CHONDROPATHY
     Dosage: 400 MG, QID
     Route: 065
     Dates: start: 201302

REACTIONS (5)
  - Drug withdrawal headache [Unknown]
  - Drug abuse [Unknown]
  - Drug dependence [Unknown]
  - Drug withdrawal syndrome [Unknown]
  - Cluster headache [Unknown]

NARRATIVE: CASE EVENT DATE: 2013
